FAERS Safety Report 9511074 (Version 1)
Quarter: 2013Q1

REPORT INFORMATION
  Report Type: Spontaneous
  Country: US (occurrence: None)
  Receive Date: 20130305
  Receipt Date: 20130305
  Transmission Date: 20140127
  Serious: Yes (Other)
  Sender: FDA-Public Use
  Company Number: 163-21880-12110973

PATIENT
  Age: 66 Year
  Sex: Female
  Weight: 65.77 kg

DRUGS (17)
  1. REVLIMID [Suspect]
     Indication: PLASMA CELL MYELOMA
     Dosage: 21 IN 28 D
     Route: 048
     Dates: start: 20111109
  2. CALCITRIOL (CALCITRIOL) (UNKNOWN) [Concomitant]
  3. DEXAMETHASONE (DEXAMETHASONE) (UNKNOWN) [Concomitant]
  4. LORATADINE (LORATADINE) (UNKNOWN) [Concomitant]
  5. AVELOX (MOXIFLOXACIN HYDROCHLORIDE) (UNKNOWN) [Concomitant]
  6. AUGMENTIN (CLAVULIN) (UNKNOWN) [Concomitant]
  7. NIFEDICAL XL (NIFEDIPINE) (UNKNOWN) [Concomitant]
  8. CLARITHROMYCIN (CLARITHROMYCIN) (UNKNOWN) [Concomitant]
  9. ASPIRIN (ACETYLSALICYLIC ACID) (UNKNOWN) (ACETYLSALICYLIC ACID) [Concomitant]
  10. CHLORHEXIDINE (CHLOHEXIDINE) (UNKNOWN) [Concomitant]
  11. LISINOPRIL (LISINOPRIL) (UNKNOWN) [Concomitant]
  12. DIAZEPAM (DIAZEPAM (UNKNOWN) [Concomitant]
  13. VITAMIN D (ERGOCALCIFEROL) (UNKNOWN) [Concomitant]
  14. PROMETHAZINE (PROMETHAZINE) (UNKNOWN) [Concomitant]
  15. CALCIUM (CALCIUM) (UNKNOWN) [Concomitant]
  16. ESTER-C (CALCIUM ASCORBATE) (UNKNOWN) [Concomitant]
  17. MULTIVITAMINS (MULTIVITAMINS) (UNKNOWN) [Concomitant]

REACTIONS (5)
  - Red blood cell count decreased [None]
  - Platelet count decreased [None]
  - Sinusitis [None]
  - Chest discomfort [None]
  - Drug dose omission [None]
